FAERS Safety Report 21314565 (Version 1)
Quarter: 2022Q3

REPORT INFORMATION
  Report Type: Spontaneous
  Country: US (occurrence: US)
  Receive Date: 20220909
  Receipt Date: 20220909
  Transmission Date: 20221026
  Serious: No
  Sender: FDA-Public Use
  Company Number: US-PFIZER INC-2021854406

PATIENT
  Age: 30 Year
  Sex: Female

DRUGS (1)
  1. ELELYSO [Suspect]
     Active Substance: TALIGLUCERASE ALFA
     Dosage: 50 ML (INFUSE 2000 UNITS (50ML) INTRAVENOUSLY EVERY 2 WEEKS IN 125 ML TO 160 ML)
     Route: 042

REACTIONS (7)
  - Intentional product misuse [Unknown]
  - Off label use [Unknown]
  - Product use issue [Unknown]
  - Illness [Unknown]
  - Malaise [Unknown]
  - Fatigue [Unknown]
  - Movement disorder [Unknown]

NARRATIVE: CASE EVENT DATE: 20220101
